FAERS Safety Report 6544217-9 (Version None)
Quarter: 2010Q1

REPORT INFORMATION
  Report Type: 
  Country: None (occurrence: None)
  Receive Date: 20100119
  Receipt Date: 20100119
  Transmission Date: 20100710
  Serious: Yes (Hospitalization)
  Sender: FDA-Public Use
  Company Number: None

PATIENT
  Sex: Female
  Weight: 40 kg

DRUGS (3)
  1. CARBOPLATIN [Suspect]
     Dosage: 693 MG
  2. PACLITAXEL [Suspect]
     Dosage: 277 MG
  3. ERBITUX [Suspect]
     Dosage: 692 MG

REACTIONS (2)
  - LUNG CONSOLIDATION [None]
  - NEUTROPENIA [None]
